FAERS Safety Report 21092827 (Version 1)
Quarter: 2022Q3

REPORT INFORMATION
  Report Type: Spontaneous
  Country: US (occurrence: US)
  Receive Date: 20220718
  Receipt Date: 20220718
  Transmission Date: 20221027
  Serious: Yes (Other)
  Sender: FDA-Public Use
  Company Number: US-SA-SAC20220714001367

PATIENT
  Age: 79 Year
  Sex: Male

DRUGS (1)
  1. ZANTAC [Suspect]
     Active Substance: RANITIDINE HYDROCHLORIDE
     Dosage: UNKNOWN AT THIS TIME FREQUENCY (DOSAGE): OTHER
     Dates: start: 199501, end: 201801

REACTIONS (2)
  - Prostate cancer [Unknown]
  - Colorectal cancer [Recovered/Resolved]

NARRATIVE: CASE EVENT DATE: 19950101
